FAERS Safety Report 11874583 (Version 1)
Quarter: 2015Q4

REPORT INFORMATION
  Report Type: Spontaneous
  Country: US (occurrence: None)
  Receive Date: 20151228
  Receipt Date: 20151228
  Transmission Date: 20160305
  Serious: Yes (Other)
  Sender: FDA-Public Use
  Company Number: None

PATIENT
  Age: 7 Year
  Sex: Male
  Weight: 22.23 kg

DRUGS (2)
  1. BENEFIBER [Concomitant]
     Active Substance: STARCH, WHEAT
  2. MIRALAX [Suspect]
     Active Substance: POLYETHYLENE GLYCOL 3350
     Indication: CONSTIPATION
     Dosage: 1 CAPFUL
     Route: 048
     Dates: start: 20151115, end: 20151218

REACTIONS (8)
  - Crying [None]
  - Incoherent [None]
  - Sleep disorder [None]
  - Memory impairment [None]
  - Agitation [None]
  - Anxiety [None]
  - Muscle twitching [None]
  - Tremor [None]

NARRATIVE: CASE EVENT DATE: 20151216
